FAERS Safety Report 6920009-3 (Version None)
Quarter: 2010Q3

REPORT INFORMATION
  Report Type: 
  Country: None (occurrence: None)
  Receive Date: 20100809
  Receipt Date: 20100728
  Transmission Date: 20110219
  Serious: Yes (Death, Other)
  Sender: FDA-Public Use
  Company Number: 2010EN000096

PATIENT
  Age: 3 Year
  Sex: Female
  Weight: 3.8 kg

DRUGS (3)
  1. ADAGEN [Suspect]
     Indication: COMBINED IMMUNODEFICIENCY
     Dosage: SE IMAGE
     Route: 030
     Dates: start: 20061229, end: 20100108
  2. IMMU-G [Concomitant]
  3. ANTIBIOTICS [Concomitant]

REACTIONS (1)
  - LYMPHOMA [None]
